FAERS Safety Report 17688707 (Version 1)
Quarter: 2020Q2

REPORT INFORMATION
  Report Type: Spontaneous
  Country: US (occurrence: US)
  Receive Date: 20200421
  Receipt Date: 20200421
  Transmission Date: 20200714
  Serious: Yes (Other)
  Sender: FDA-Public Use
  Company Number: US-JNJFOC-20200416141

PATIENT
  Sex: Female
  Weight: 65.38 kg

DRUGS (6)
  1. MAGNESIUM [Concomitant]
     Active Substance: MAGNESIUM
  2. HCTZ [Concomitant]
     Active Substance: HYDROCHLOROTHIAZIDE
  3. LISINOPRIL. [Concomitant]
     Active Substance: LISINOPRIL
  4. XARELTO [Suspect]
     Active Substance: RIVAROXABAN
     Indication: THROMBOSIS
     Dosage: IN THE MORNING
     Route: 048
     Dates: start: 2019
  5. ZINC. [Concomitant]
     Active Substance: ZINC
  6. CALCIUM [Concomitant]
     Active Substance: CALCIUM

REACTIONS (8)
  - Renal cyst [Unknown]
  - Insomnia [Unknown]
  - Asthenia [Unknown]
  - Thrombosis [Unknown]
  - Hypoxia [Unknown]
  - Blue toe syndrome [Unknown]
  - Tooth fracture [Unknown]
  - Vaginal haemorrhage [Unknown]
